FAERS Safety Report 5333589-9 (Version None)
Quarter: 2007Q2

REPORT INFORMATION
  Report Type: 
  Country: None (occurrence: None)
  Receive Date: 20070524
  Receipt Date: 20070515
  Transmission Date: 20071010
  Serious: Yes (Life-Threatening)
  Sender: FDA-Public Use
  Company Number: JP-ROCHE-485394

PATIENT
  Age: 12 Year
  Sex: Male
  Weight: 45 kg

DRUGS (3)
  1. TAMIFLU [Suspect]
     Route: 048
     Dates: start: 20070207, end: 20070207
  2. PRANOPROFEN [Concomitant]
     Dosage: DRUG NAME REPORTED AS MABUL.
     Route: 048
     Dates: start: 20070207, end: 20070207
  3. AMBROXOL HYDROCHLORIDE [Concomitant]
     Dosage: DRUG NAME REPORTED AS MUCOASTOMARI.
     Route: 048
     Dates: start: 20070207, end: 20070207

REACTIONS (1)
  - ABNORMAL BEHAVIOUR [None]
